FAERS Safety Report 8797824 (Version 1)
Quarter: 2012Q4

REPORT INFORMATION
  Report Type: 
  Country: US (occurrence: US)
  Receive Date: 20120919
  Receipt Date: 20120919
  Transmission Date: 20130627
  Serious: No
  Sender: FDA-Public Use
  Company Number: US-ASTRAZENECA-2012SE65209

PATIENT
  Age: 78 Year
  Sex: Female

DRUGS (3)
  1. NEXIUM [Suspect]
     Route: 048
  2. LISINOPRIL [Suspect]
     Route: 048
  3. AZOR [Concomitant]

REACTIONS (4)
  - Renal disorder [Unknown]
  - Hypotension [Unknown]
  - Drug ineffective [Unknown]
  - Drug dose omission [Unknown]
